FAERS Safety Report 20076630 (Version 1)
Quarter: 2021Q4

REPORT INFORMATION
  Report Type: Spontaneous
  Country: PL (occurrence: PL)
  Receive Date: 20211116
  Receipt Date: 20211116
  Transmission Date: 20220303
  Serious: Yes (Other)
  Sender: FDA-Public Use
  Company Number: PL-ABBVIE-21K-129-4156622-00

PATIENT
  Age: 29 Year
  Sex: Male

DRUGS (5)
  1. VALPROIC ACID [Suspect]
     Active Substance: VALPROIC ACID
     Indication: Epilepsy
     Route: 065
  2. TOPIRAMATE [Suspect]
     Active Substance: TOPIRAMATE
     Indication: Epilepsy
     Route: 065
  3. OXCARBAZEPINE [Suspect]
     Active Substance: OXCARBAZEPINE
     Indication: Epilepsy
     Route: 065
  4. LACOSAMIDE [Suspect]
     Active Substance: LACOSAMIDE
     Indication: Seizure
     Route: 065
  5. PREGABALIN [Concomitant]
     Active Substance: PREGABALIN
     Indication: Product used for unknown indication

REACTIONS (29)
  - Erectile dysfunction [Unknown]
  - Generalised tonic-clonic seizure [Recovered/Resolved]
  - Intellectual disability [Unknown]
  - Petit mal epilepsy [Recovered/Resolved]
  - Tremor [Recovered/Resolved]
  - Decreased appetite [Recovered/Resolved]
  - Fear [Unknown]
  - Anxiety [Unknown]
  - Bradykinesia [Unknown]
  - Speech disorder developmental [Unknown]
  - Bone pain [Unknown]
  - Depressed mood [Unknown]
  - Palpitations [Unknown]
  - Dry mouth [Unknown]
  - Dissociation [Unknown]
  - Weight decreased [Unknown]
  - Loss of libido [Unknown]
  - Restlessness [Unknown]
  - Daydreaming [Unknown]
  - Pain in extremity [Unknown]
  - Dizziness [Unknown]
  - Nystagmus [Unknown]
  - Somnolence [Unknown]
  - Aggression [Unknown]
  - Memory impairment [Unknown]
  - Diarrhoea [Unknown]
  - Speech disorder developmental [Unknown]
  - Somnolence [Unknown]
  - Drug ineffective [Unknown]

NARRATIVE: CASE EVENT DATE: 20190601
